FAERS Safety Report 7035575-X (Version None)
Quarter: 2010Q4

REPORT INFORMATION
  Report Type: 
  Country: None (occurrence: None)
  Receive Date: 20101008
  Receipt Date: 20100929
  Transmission Date: 20110411
  Serious: Yes (Other)
  Sender: FDA-Public Use
  Company Number: US-PFIZER INC-2010124050

PATIENT
  Sex: Female
  Weight: 61.224 kg

DRUGS (1)
  1. CHANTIX [Suspect]
     Indication: SMOKING CESSATION THERAPY
     Dosage: 0.5 MG, 1X/DAY
     Route: 048
     Dates: start: 20100927, end: 20100928

REACTIONS (6)
  - ASTHENIA [None]
  - FATIGUE [None]
  - NAUSEA [None]
  - PHARYNGEAL OEDEMA [None]
  - SOMNOLENCE [None]
  - THROAT IRRITATION [None]
